FAERS Safety Report 7583047-6 (Version None)
Quarter: 2011Q2

REPORT INFORMATION
  Report Type: 
  Country: None (occurrence: None)
  Receive Date: 20110627
  Receipt Date: 20110627
  Transmission Date: 20111010
  Serious: Yes (Other)
  Sender: FDA-Public Use
  Company Number: None

PATIENT
  Age: 14 Year
  Sex: Male
  Weight: 81.6475 kg

DRUGS (1)
  1. CEFDINIR [Suspect]
     Indication: PNEUMONIA
     Dosage: ONE CAPSUL 12 HOURS PO
     Route: 048
     Dates: start: 20110610, end: 20110613

REACTIONS (3)
  - OEDEMA PERIPHERAL [None]
  - URTICARIA [None]
  - RASH [None]
